FAERS Safety Report 12522697 (Version 1)
Quarter: 2016Q3

REPORT INFORMATION
  Report Type: Spontaneous
  Country: US (occurrence: US)
  Receive Date: 20160701
  Receipt Date: 20160701
  Transmission Date: 20161109
  Serious: No
  Sender: FDA-Public Use
  Company Number: US-FRI-1000085211

PATIENT
  Age: 58 Year
  Sex: Male

DRUGS (2)
  1. VRAYLAR [Suspect]
     Active Substance: CARIPRAZINE
     Dosage: 3MG
     Route: 048
     Dates: start: 201605, end: 20160530
  2. VRAYLAR [Suspect]
     Active Substance: CARIPRAZINE
     Indication: DEPRESSION
     Dosage: 1.5MG
     Route: 048
     Dates: start: 201604, end: 201605

REACTIONS (11)
  - Myalgia [Recovering/Resolving]
  - Asthenia [Recovering/Resolving]
  - Rash [Recovering/Resolving]
  - Drug dose omission [Recovered/Resolved]
  - Weight increased [Recovering/Resolving]
  - Dysstasia [Recovering/Resolving]
  - Intentional product misuse [Recovered/Resolved]
  - Off label use [Recovered/Resolved]
  - Malaise [Recovering/Resolving]
  - Increased appetite [Recovering/Resolving]
  - Lethargy [Recovering/Resolving]

NARRATIVE: CASE EVENT DATE: 201604
